FAERS Safety Report 9730913 (Version 1)
Quarter: 2013Q4

REPORT INFORMATION
  Report Type: Report from Study
  Country: US (occurrence: US)
  Receive Date: 20131205
  Receipt Date: 20131205
  Transmission Date: 20140711
  Serious: No
  Sender: FDA-Public Use
  Company Number: US-B.I. PHARMACEUTICALS,INC./RIDGEFIELD-2013-BI-39147BI

PATIENT
  Sex: 0

DRUGS (8)
  1. GILOTRIF [Suspect]
     Indication: LUNG NEOPLASM MALIGNANT
     Dosage: 40 MG
     Route: 048
     Dates: start: 20130923
  2. ARIXTRA [Concomitant]
     Dosage: FORMULATION SYRINGE
  3. NEXIUM [Concomitant]
  4. METOPROLOL TARTRATE [Concomitant]
  5. LOPERAMIDE [Concomitant]
     Dosage: FORMULATION CAPLET
     Route: 048
  6. FOLIC ACID [Concomitant]
  7. BENADRYL [Concomitant]
     Dosage: FORMULATION LIQUI-GELS
  8. EUCERINE CREAM [Concomitant]

REACTIONS (3)
  - Diarrhoea [Unknown]
  - Rash [Unknown]
  - Decreased appetite [Unknown]
